FAERS Safety Report 15361667 (Version 1)
Quarter: 2018Q3

REPORT INFORMATION
  Report Type: Spontaneous
  Country: FR (occurrence: FR)
  Receive Date: 20180907
  Receipt Date: 20180907
  Transmission Date: 20181010
  Serious: Yes (Hospitalization)
  Sender: FDA-Public Use
  Company Number: PHHY2018FR090011

PATIENT
  Age: 22 Year
  Sex: Male

DRUGS (7)
  1. CELESTENE [Suspect]
     Active Substance: BETAMETHASONE
     Indication: TOOTH EXTRACTION
     Dosage: 6 MG, QD
     Route: 048
     Dates: start: 20180801, end: 20180803
  2. SINGULAIR [Suspect]
     Active Substance: MONTELUKAST SODIUM
     Indication: ASTHMA
     Dosage: 10 MG, QD, IN THE EVENING
     Route: 055
     Dates: start: 2015, end: 20180809
  3. SERETIDE [Suspect]
     Active Substance: FLUTICASONE PROPIONATE\SALMETEROL XINAFOATE
     Indication: ASTHMA
     Dosage: 1 DF, QD, 0?0?1
     Route: 055
     Dates: start: 2015
  4. BILASKA [Suspect]
     Active Substance: BILASTINE
     Indication: HYPERSENSITIVITY
     Dosage: 1 DF, QD, 0?0?1
     Route: 048
     Dates: start: 2015
  5. VENTOLIN [Suspect]
     Active Substance: ALBUTEROL SULFATE
     Indication: ASTHMA
     Dosage: IF NECESSARY
     Route: 055
  6. AMOXICILLIN. [Suspect]
     Active Substance: AMOXICILLIN
     Indication: TOOTH EXTRACTION
     Dosage: 2 G, QD,  1?0?1
     Route: 048
     Dates: start: 20180801, end: 20180807
  7. PARACETAMOL [Suspect]
     Active Substance: ACETAMINOPHEN
     Indication: PAIN
     Dosage: 3 G, QD, IF NECESSARY
     Route: 048
     Dates: start: 20180801

REACTIONS (1)
  - Pancreatitis [Recovering/Resolving]

NARRATIVE: CASE EVENT DATE: 20180809
